FAERS Safety Report 6015804-1 (Version None)
Quarter: 2008Q4

REPORT INFORMATION
  Report Type: 
  Country: None (occurrence: None)
  Receive Date: 20081222
  Receipt Date: 20081211
  Transmission Date: 20090506
  Serious: Yes (Hospitalization)
  Sender: FDA-Public Use
  Company Number: GB-AMGEN-UK320611

PATIENT
  Age: 45 Year
  Sex: Female

DRUGS (4)
  1. NEULASTA [Suspect]
     Indication: CHEMOTHERAPY
     Dates: start: 20081101
  2. DOXORUBICIN HYDROCHLORIDE [Concomitant]
     Dates: start: 20081031
  3. CYCLOPHOSPHAMIDE [Concomitant]
     Dates: start: 20081031
  4. DOCETAXEL [Concomitant]
     Dates: start: 20081031

REACTIONS (1)
  - FEBRILE NEUTROPENIA [None]
